FAERS Safety Report 15489069 (Version 1)
Quarter: 2018Q4

REPORT INFORMATION
  Report Type: Spontaneous
  Country: PL (occurrence: PL)
  Receive Date: 20181011
  Receipt Date: 20181011
  Transmission Date: 20190205
  Serious: Yes (Other)
  Sender: FDA-Public Use
  Company Number: PL-PFIZER INC-2018407203

PATIENT
  Age: 79 Year
  Sex: Male

DRUGS (18)
  1. CAMPTO [Suspect]
     Active Substance: IRINOTECAN
     Indication: COLORECTAL CANCER
     Dosage: 340 MG, UNK
     Route: 042
     Dates: start: 20180201
  2. CAMPTO [Suspect]
     Active Substance: IRINOTECAN
     Dosage: 220 MG, ON DAY 1
     Route: 042
     Dates: start: 20180827
  3. LEVOFOLIC [Suspect]
     Active Substance: LEUCOVORIN
     Indication: COLORECTAL CANCER
     Dosage: 380 MG, 44 HOURS
     Route: 042
     Dates: start: 20180201
  4. DEXAVEN [Concomitant]
     Active Substance: DEXAMETHASONE
     Dosage: UNK
  5. LEVOFOLIC [Suspect]
     Active Substance: LEUCOVORIN
     Dosage: 300 MG, 44 HOURS
     Route: 042
     Dates: start: 20180827
  6. PRESTARIUM [PERINDOPRIL] [Concomitant]
     Dosage: UNK
  7. TORECAN [Suspect]
     Active Substance: THIETHYLPERAZINE MALATE
     Dosage: UNK
     Route: 065
  8. AVASTIN [Suspect]
     Active Substance: BEVACIZUMAB
     Indication: COLORECTAL CANCER
     Dosage: 385 MG, ON DAY 1
     Route: 042
     Dates: start: 20180201
  9. ATROPINE. [Concomitant]
     Active Substance: ATROPINE
     Dosage: UNK
     Route: 065
  10. 5-FU [FLUOROURACIL] [Suspect]
     Active Substance: FLUOROURACIL
     Dosage: 1440 MG, UNK
     Route: 042
     Dates: start: 20180827
  11. METOCLOPRAMIDE. [Concomitant]
     Active Substance: METOCLOPRAMIDE
     Dosage: UNK
  12. ONDANSETRON [Concomitant]
     Active Substance: ONDANSETRON
     Dosage: UNK
     Route: 065
  13. 5-FU [FLUOROURACIL] [Suspect]
     Active Substance: FLUOROURACIL
     Indication: COLORECTAL CANCER
     Dosage: 2280 MG, UNK
     Route: 042
     Dates: start: 20180201
  14. 5-FU [FLUOROURACIL] [Suspect]
     Active Substance: FLUOROURACIL
     Dosage: 480 MG, ON DAYS 1-2
     Route: 040
     Dates: start: 20180827
  15. METOPROLOL TARTRATE. [Concomitant]
     Active Substance: METOPROLOL TARTRATE
     Dosage: UNK
  16. 5-FU [FLUOROURACIL] [Suspect]
     Active Substance: FLUOROURACIL
     Dosage: 760 MG, ON DAYS 1-2
     Route: 040
     Dates: start: 20180201
  17. TORECAN [Suspect]
     Active Substance: THIETHYLPERAZINE MALATE
     Dosage: UNK
     Route: 065
  18. AVASTIN [Suspect]
     Active Substance: BEVACIZUMAB
     Dosage: 380 MG, ON DAY 1
     Route: 042
     Dates: start: 20180827

REACTIONS (8)
  - Palmar-plantar erythrodysaesthesia syndrome [Unknown]
  - Nausea [Unknown]
  - Soft tissue disorder [Unknown]
  - Neutropenia [Unknown]
  - Anaemia [Unknown]
  - Vomiting [Unknown]
  - Diarrhoea [Unknown]
  - Intervertebral disc degeneration [Unknown]
